FAERS Safety Report 4487749-X (Version None)
Quarter: 2004Q4

REPORT INFORMATION
  Report Type: 
  Country: None (occurrence: None)
  Receive Date: 20041025
  Receipt Date: 20041011
  Transmission Date: 20050328
  Serious: Yes (Hospitalization)
  Sender: FDA-Public Use
  Company Number: 170919

PATIENT
  Age: 50 Year
  Sex: Male
  Weight: 73.9363 kg

DRUGS (7)
  1. AVONEX [Suspect]
     Indication: MULTIPLE SCLEROSIS
     Dosage: 30 MCG QW IM
     Route: 030
     Dates: start: 19990901, end: 20030301
  2. PROTONIX [Concomitant]
  3. POTASSIUM [Concomitant]
  4. LOPID [Concomitant]
  5. LIPITOR [Concomitant]
  6. LOPRESSOR [Concomitant]
  7. NITROGLYCERIN ^DAK^ [Concomitant]

REACTIONS (3)
  - CONVULSION [None]
  - CORONARY ARTERY OCCLUSION [None]
  - MYOCARDIAL INFARCTION [None]
